FAERS Safety Report 23343489 (Version 4)
Quarter: 2024Q2

REPORT INFORMATION
  Report Type: Spontaneous
  Country: US (occurrence: US)
  Receive Date: 20231227
  Receipt Date: 20240503
  Transmission Date: 20240716
  Serious: No
  Sender: FDA-Public Use
  Company Number: US-PFIZER INC-PV202300205558

PATIENT
  Age: 67 Year
  Sex: Female
  Weight: 54.88 kg

DRUGS (1)
  1. IBRANCE [Suspect]
     Active Substance: PALBOCICLIB
     Indication: Neoplasm malignant
     Dosage: 125 MG, ONE TABLET BY MOUTH ONCE DAILY, FOR THREE WEEKS AND STOP FOR WEEK
     Route: 048

REACTIONS (5)
  - Fatigue [Unknown]
  - Fall [Unknown]
  - Malaise [Unknown]
  - Constipation [Unknown]
  - Diarrhoea [Unknown]
